FAERS Safety Report 10913680 (Version 1)
Quarter: 2015Q1

REPORT INFORMATION
  Report Type: Spontaneous
  Country: US (occurrence: None)
  Receive Date: 20150310
  Receipt Date: 20150310
  Transmission Date: 20150721
  Serious: Yes (Other)
  Sender: FDA-Public Use
  Company Number: None

PATIENT
  Age: 9 Year
  Sex: Male
  Weight: 97.4 kg

DRUGS (2)
  1. GUANFACINE ER [Suspect]
     Active Substance: GUANFACINE
     Indication: OPPOSITIONAL DEFIANT DISORDER
     Dosage: AM
     Route: 048
     Dates: start: 20150102, end: 20150217
  2. GUANFACINE ER [Suspect]
     Active Substance: GUANFACINE
     Indication: ATTENTION DEFICIT/HYPERACTIVITY DISORDER
     Dosage: AM
     Route: 048
     Dates: start: 20150102, end: 20150217

REACTIONS (2)
  - Disturbance in attention [None]
  - Attention deficit/hyperactivity disorder [None]

NARRATIVE: CASE EVENT DATE: 20150102
